FAERS Safety Report 6056081-5 (Version None)
Quarter: 2009Q1

REPORT INFORMATION
  Report Type: 
  Country: None (occurrence: None)
  Receive Date: 20090126
  Receipt Date: 20090112
  Transmission Date: 20090719
  Serious: Yes (Other)
  Sender: FDA-Public Use
  Company Number: 2008US003526

PATIENT
  Age: 43 Year
  Sex: Male
  Weight: 136.1 kg

DRUGS (4)
  1. AMEVIVE [Suspect]
     Indication: PSORIASIS
     Dosage: 15 MG, WEEKLY, INTRAMUSCULAR : 15 MG, WEEKLY, INTRAMUSCULAR
     Route: 030
     Dates: start: 20070828, end: 20071120
  2. AMEVIVE [Suspect]
     Indication: PSORIASIS
     Dosage: 15 MG, WEEKLY, INTRAMUSCULAR : 15 MG, WEEKLY, INTRAMUSCULAR
     Route: 030
     Dates: start: 20080514, end: 20080815
  3. PAXIL [Concomitant]
  4. TYLENOL W/ CODEINE NO. 3 [Concomitant]

REACTIONS (2)
  - DIABETES MELLITUS [None]
  - GLYCOSYLATED HAEMOGLOBIN INCREASED [None]
